FAERS Safety Report 8375072-2 (Version None)
Quarter: 2012Q2

REPORT INFORMATION
  Report Type: 
  Country: None (occurrence: None)
  Receive Date: 20120521
  Receipt Date: 20120511
  Transmission Date: 20120825
  Serious: Yes (Hospitalization, Other)
  Sender: FDA-Public Use
  Company Number: IN-BAXTER-2012BAX005550

PATIENT
  Age: 2 Year
  Sex: Male

DRUGS (1)
  1. DEXTROSE 5% AND ELECTROLYTE NO.48 IN PLASTIC CONTAINER [Suspect]
     Route: 042

REACTIONS (3)
  - CHILLS [None]
  - CONVULSION [None]
  - HYPERPYREXIA [None]
